FAERS Safety Report 8202102-0 (Version None)
Quarter: 2012Q1

REPORT INFORMATION
  Report Type: 
  Country: None (occurrence: None)
  Receive Date: 20120312
  Receipt Date: 20120301
  Transmission Date: 20120608
  Serious: Yes (Hospitalization, Disabling)
  Sender: FDA-Public Use
  Company Number: US-ASTRAZENECA-2012SE14799

PATIENT
  Age: 37 Year
  Sex: Female

DRUGS (1)
  1. SEROQUEL [Suspect]
     Indication: SCHIZOPHRENIA, PARANOID TYPE
     Dosage: 600 TO 900 MG PER DAY
     Route: 048

REACTIONS (4)
  - SOCIAL FEAR [None]
  - SCHIZOPHRENIA, PARANOID TYPE [None]
  - IMPAIRED WORK ABILITY [None]
  - DRUG TOLERANCE [None]
